FAERS Safety Report 7979835-4 (Version None)
Quarter: 2011Q4

REPORT INFORMATION
  Report Type: 
  Country: None (occurrence: None)
  Receive Date: 20111214
  Receipt Date: 20111209
  Transmission Date: 20120403
  Serious: Yes (Other)
  Sender: FDA-Public Use
  Company Number: BR-ROCHE-1020701

PATIENT
  Sex: Female
  Weight: 59 kg

DRUGS (4)
  1. BROMAZEPAM [Concomitant]
     Route: 048
  2. ATACAND [Concomitant]
     Route: 048
  3. OMEPRAZOLE [Concomitant]
     Dosage: IN FASTING
     Route: 048
  4. BONIVA [Suspect]
     Indication: OSTEOPOROSIS
     Route: 048
     Dates: start: 20090101, end: 20111001

REACTIONS (2)
  - CATARACT [None]
  - RETINAL DETACHMENT [None]
